FAERS Safety Report 10071312 (Version 2)
Quarter: 2014Q2

REPORT INFORMATION
  Report Type: Spontaneous
  Country: US (occurrence: US)
  Receive Date: 20140410
  Receipt Date: 20140410
  Transmission Date: 20141212
  Serious: Yes (Hospitalization, Other)
  Sender: FDA-Public Use
  Company Number: US-MPIJNJ-2014MPI000949

PATIENT
  Sex: Female

DRUGS (2)
  1. VELCADE [Suspect]
     Indication: THROMBOTIC THROMBOCYTOPENIC PURPURA
     Dosage: 1.3 MG/M2, UNK
     Route: 058
  2. VELCADE [Suspect]
     Dosage: 1.3 MG/M2, ON DAYS 1 AND 8 OF A 21-DAY CYCLE
     Route: 058

REACTIONS (5)
  - Interstitial lung disease [Unknown]
  - Staphylococcal bacteraemia [Unknown]
  - Febrile neutropenia [Unknown]
  - Therapeutic response changed [Unknown]
  - Off label use [Unknown]
